FAERS Safety Report 8889306 (Version 1)
Quarter: 2012Q4

REPORT INFORMATION
  Report Type: 
  Country: US (occurrence: US)
  Receive Date: 20121106
  Receipt Date: 20121106
  Transmission Date: 20130627
  Serious: No
  Sender: FDA-Public Use
  Company Number: US-ASTRAZENECA-2012SE81376

PATIENT
  Age: 57 Year
  Sex: Female
  Weight: 72.6 kg

DRUGS (8)
  1. CRESTOR [Suspect]
     Indication: LOW DENSITY LIPOPROTEIN INCREASED
     Dosage: 5 MG 4 TIMES WEEK
     Route: 048
     Dates: start: 2011
  2. CRESTOR [Suspect]
     Indication: LOW DENSITY LIPOPROTEIN INCREASED
     Route: 048
     Dates: start: 201207
  3. SYNTHROID [Concomitant]
     Indication: HYPOTHYROIDISM
  4. CLARITIN [Concomitant]
     Indication: RHINITIS ALLERGIC
  5. EFFEXOR XR [Concomitant]
     Indication: DEPRESSION
  6. PREDNISONE [Concomitant]
     Indication: POLYMYALGIA RHEUMATICA
  7. ADVIL [Concomitant]
     Indication: ARTHRALGIA
  8. VITAMIN D [Concomitant]
     Indication: SUPPLEMENTATION THERAPY

REACTIONS (5)
  - White blood cell count increased [Not Recovered/Not Resolved]
  - Red blood cell sedimentation rate increased [Not Recovered/Not Resolved]
  - C-reactive protein increased [Not Recovered/Not Resolved]
  - Myalgia [Not Recovered/Not Resolved]
  - Intentional drug misuse [Unknown]
